APPROVED DRUG PRODUCT: TOBRAMYCIN SULFATE (PHARMACY BULK)
Active Ingredient: TOBRAMYCIN SULFATE
Strength: EQ 40MG BASE/ML **Federal Register determination that product was not discontinued or withdrawn for safety or effectiveness reasons**
Dosage Form/Route: INJECTABLE;INJECTION
Application: A063116 | Product #001
Applicant: HOSPIRA INC
Approved: May 18, 1992 | RLD: No | RS: No | Type: DISCN